FAERS Safety Report 6258141-2 (Version None)
Quarter: 2009Q3

REPORT INFORMATION
  Report Type: 
  Country: None (occurrence: None)
  Receive Date: 20090707
  Receipt Date: 20090623
  Transmission Date: 20100115
  Serious: Yes (Death)
  Sender: FDA-Public Use
  Company Number: US-TYCO HEALTHCARE/MALLINCKRODT-T200901126

PATIENT
  Age: 28 Year
  Sex: Male

DRUGS (6)
  1. METHADOSE [Suspect]
  2. TEMAZEPAM [Suspect]
  3. DIAZEPAM [Suspect]
     Dosage: 3 DAILY
  4. ALPRAZOLAM [Suspect]
  5. OXAZEPAM [Suspect]
  6. OXYCONTIN [Concomitant]
     Dosage: 2 DAILY

REACTIONS (1)
  - MULTIPLE DRUG OVERDOSE ACCIDENTAL [None]
